FAERS Safety Report 4567559-5 (Version None)
Quarter: 2005Q1

REPORT INFORMATION
  Report Type: 
  Country: None (occurrence: None)
  Receive Date: 20050127
  Receipt Date: 20050117
  Transmission Date: 20050727
  Serious: Yes (Hospitalization)
  Sender: FDA-Public Use
  Company Number: 6012626F

PATIENT
  Age: 33 Year
  Sex: Male

DRUGS (1)
  1. NIASPAN [Suspect]
     Indication: BLOOD TRIGLYCERIDES INCREASED
     Dosage: 375 MG UNK PO
     Route: 048
     Dates: start: 20041116, end: 20041120

REACTIONS (4)
  - DYSPNOEA [None]
  - PRURITUS [None]
  - RESPIRATORY FAILURE [None]
  - URTICARIA GENERALISED [None]
